FAERS Safety Report 8786883 (Version 2)
Quarter: 2012Q4

REPORT INFORMATION
  Report Type: 
  Country: US (occurrence: US)
  Receive Date: 20120914
  Receipt Date: 20121029
  Transmission Date: 20130627
  Serious: No
  Sender: FDA-Public Use
  Company Number: US-VERTEX PHARMACEUTICAL INC.-AE-2012-008363

PATIENT
  Age: 61 Year
  Sex: Male
  Weight: 92 kg

DRUGS (6)
  1. VX-950 [Suspect]
     Indication: HEPATITIS C
     Dosage: 750 mg, tid
     Route: 048
     Dates: start: 20120505, end: 20120726
  2. PEGASYS [Concomitant]
     Indication: HEPATITIS C
     Dosage: 180 �g, UNK
     Route: 058
     Dates: start: 20120505
  3. RIBAVIRIN [Concomitant]
     Indication: HEPATITIS C
     Dosage: 600 mg, UNK
     Route: 048
     Dates: start: 20120505
  4. MORPHINE SULPHATE [Concomitant]
     Indication: ARTHRALGIA
     Dosage: 15 mg, UNK
     Route: 048
  5. MULTIVITAMINS [Concomitant]
  6. HYDROXYZINE PAM [Concomitant]

REACTIONS (2)
  - Neutropenia [Unknown]
  - Nausea [Unknown]
